FAERS Safety Report 5894202-5 (Version None)
Quarter: 2008Q3

REPORT INFORMATION
  Report Type: 
  Country: None (occurrence: None)
  Receive Date: 20080923
  Receipt Date: 20080915
  Transmission Date: 20090109
  Serious: Yes (Other)
  Sender: FDA-Public Use
  Company Number: US-GILEAD-2008-0018165

PATIENT
  Age: 31 Year
  Sex: Male

DRUGS (2)
  1. VIREAD [Suspect]
     Indication: HIV INFECTION
  2. LAMIVUDINE [Concomitant]
     Indication: HIV INFECTION

REACTIONS (2)
  - GENOTYPE DRUG RESISTANCE TEST POSITIVE [None]
  - THERAPEUTIC RESPONSE DECREASED [None]
